FAERS Safety Report 5995807-3 (Version None)
Quarter: 2008Q4

REPORT INFORMATION
  Report Type: 
  Country: None (occurrence: None)
  Receive Date: 20081212
  Receipt Date: 20081203
  Transmission Date: 20090506
  Serious: Yes (Disabling, Other)
  Sender: FDA-Public Use
  Company Number: CA-JNJFOC-20081201619

PATIENT
  Age: 78 Year
  Sex: Male

DRUGS (2)
  1. REMICADE [Suspect]
     Indication: COLITIS ULCERATIVE
     Route: 042
  2. SALOFALK SUPPOSITORIES [Concomitant]

REACTIONS (4)
  - HYPOACUSIS [None]
  - ONYCHOMADESIS [None]
  - PARAESTHESIA [None]
  - RASH [None]
